FAERS Safety Report 16819223 (Version 2)
Quarter: 2020Q3

REPORT INFORMATION
  Report Type: Spontaneous
  Country: US (occurrence: US)
  Receive Date: 20190917
  Receipt Date: 20200907
  Transmission Date: 20201102
  Serious: Yes (Hospitalization, Disabling, Other)
  Sender: FDA-Public Use
  Company Number: US-AMGEN-USASP2019151942

PATIENT
  Age: 87 Year
  Sex: Male
  Weight: 80.1 kg

DRUGS (3)
  1. IMLYGIC [Suspect]
     Active Substance: TALIMOGENE LAHERPAREPVEC
     Dosage: 0.1 MILLILITER
     Route: 026
     Dates: start: 20170607, end: 20170906
  2. IMLYGIC [Suspect]
     Active Substance: TALIMOGENE LAHERPAREPVEC
     Indication: METASTATIC MALIGNANT MELANOMA
     Dosage: 4 MILLILITER, CYCLICAL, DISTRIBUTED AMONG 8 LESIONS (4 ML, 1 X 10^6 PFU/ML)
     Route: 026
     Dates: start: 20160113, end: 20160113
  3. PEMBROLIZUMAB. [Suspect]
     Active Substance: PEMBROLIZUMAB
     Indication: MELANOMA RECURRENT
     Dosage: UNK UNK, CYCLICAL
     Route: 065
     Dates: start: 20160622, end: 20160713

REACTIONS (4)
  - Melanoma recurrent [Unknown]
  - Injection site necrosis [Recovered/Resolved]
  - Injection site cellulitis [Recovered/Resolved]
  - Myopathy [Unknown]

NARRATIVE: CASE EVENT DATE: 2016
